FAERS Safety Report 25468400 (Version 1)
Quarter: 2025Q2

REPORT INFORMATION
  Report Type: Spontaneous
  Country: DE (occurrence: DE)
  Receive Date: 20250623
  Receipt Date: 20250623
  Transmission Date: 20250716
  Serious: Yes (Hospitalization, Other)
  Sender: ANI
  Company Number: DE-ANIPHARMA-2025-DE-000044

PATIENT
  Age: 82 Year
  Sex: Female

DRUGS (10)
  1. CANDESARTAN CILEXETIL [Suspect]
     Active Substance: CANDESARTAN CILEXETIL
     Indication: Drug therapy
     Route: 048
  2. ATORVASTATIN [Suspect]
     Active Substance: ATORVASTATIN
     Route: 048
  3. OLANZAPINE [Suspect]
     Active Substance: OLANZAPINE
     Route: 048
  4. ASPIRIN [Concomitant]
     Active Substance: ASPIRIN
  5. CHOLECALCIFEROL [Concomitant]
     Active Substance: CHOLECALCIFEROL
  6. FLUTICASONE FUROATE\VILANTEROL TRIFENATATE [Concomitant]
     Active Substance: FLUTICASONE FUROATE\VILANTEROL TRIFENATATE
  7. METHOTREXATE SODIUM [Concomitant]
     Active Substance: METHOTREXATE SODIUM
  8. FOLATE SODIUM [Concomitant]
     Active Substance: FOLATE SODIUM
  9. MIRTAZAPINE [Suspect]
     Active Substance: MIRTAZAPINE
     Route: 048
     Dates: start: 2025, end: 20250309
  10. HYDROXYCHLOROQUINE [Suspect]
     Active Substance: HYDROXYCHLOROQUINE
     Route: 048

REACTIONS (6)
  - Fall [Recovered/Resolved]
  - Dizziness [Recovered/Resolved]
  - Lumbar vertebral fracture [Recovered/Resolved]
  - Pelvic fracture [Recovered/Resolved]
  - Hypotension [Recovered/Resolved]
  - Wheelchair user [Not Recovered/Not Resolved]

NARRATIVE: CASE EVENT DATE: 20250305
